FAERS Safety Report 18957280 (Version 1)
Quarter: 2021Q1

REPORT INFORMATION
  Report Type: Spontaneous
  Country: US (occurrence: US)
  Receive Date: 20210302
  Receipt Date: 20210302
  Transmission Date: 20210420
  Serious: Yes (Other)
  Sender: FDA-Public Use
  Company Number: US-PFIZER INC-2001080935US

PATIENT
  Age: 75 Year
  Sex: Male

DRUGS (19)
  1. VITAMIN K [PHYTOMENADIONE] [Concomitant]
     Dosage: UNK
     Route: 065
     Dates: start: 19990609, end: 19991015
  2. CELEBREX [Interacting]
     Active Substance: CELECOXIB
     Dosage: 100 MG, 2X/DAY
     Route: 048
     Dates: start: 19990406, end: 19990603
  3. DIGOXIN. [Concomitant]
     Active Substance: DIGOXIN
     Dosage: 0.125 MG, 1X/DAY
     Route: 065
  4. LISINOPRIL. [Concomitant]
     Active Substance: LISINOPRIL
     Dosage: 10 MG, 1X/DAY
     Route: 065
  5. WARFARIN SODIUM. [Interacting]
     Active Substance: WARFARIN SODIUM
     Dosage: 19.3 MG, WEEKLY
     Route: 065
     Dates: start: 19990504, end: 19990614
  6. WARFARIN SODIUM. [Interacting]
     Active Substance: WARFARIN SODIUM
     Dosage: 21 MG, WEEKLY
     Route: 065
     Dates: start: 19990615, end: 19991015
  7. ALLOPURINOL. [Concomitant]
     Active Substance: ALLOPURINOL
     Dosage: 100 MG, 1X/DAY
     Route: 065
  8. SIMVASTATIN. [Concomitant]
     Active Substance: SIMVASTATIN
     Dosage: 20 MG, 1X/DAY AT BEDTIME
     Route: 065
  9. VITAMIN K [PHYTOMENADIONE] [Concomitant]
     Dosage: UNK
     Route: 065
     Dates: start: 19990525, end: 19990608
  10. WARFARIN SODIUM. [Interacting]
     Active Substance: WARFARIN SODIUM
     Dosage: 21 MG, WEEKLY
     Route: 065
     Dates: start: 19990406, end: 19990503
  11. DILTIAZEM. [Concomitant]
     Active Substance: DILTIAZEM
     Dosage: 180 MG, 1X/DAY
     Route: 065
  12. ASPIRINE [Concomitant]
     Active Substance: ASPIRIN
     Dosage: 81 MG, 1X/DAY
     Route: 065
  13. ISOSORBIDE DINITRATE ELMED EISAI [Concomitant]
     Dosage: 5 MG, 3X/DAY
     Route: 065
  14. VITAMIN K [PHYTOMENADIONE] [Concomitant]
     Dosage: UNK
     Route: 065
     Dates: start: 19990113, end: 19990524
  15. CELEBREX [Suspect]
     Active Substance: CELECOXIB
     Dosage: 100 MG, 2X/DAY
     Route: 048
     Dates: start: 19990322, end: 19990330
  16. WARFARIN SODIUM. [Interacting]
     Active Substance: WARFARIN SODIUM
     Indication: ATRIAL FIBRILLATION
     Dosage: 19.3 MG, WEEKLY
     Route: 065
     Dates: start: 19990113, end: 19990126
  17. WARFARIN SODIUM. [Interacting]
     Active Substance: WARFARIN SODIUM
     Dosage: 19.3 MG, WEEKLY
     Route: 065
     Dates: start: 19990303, end: 19990405
  18. WARFARIN SODIUM. [Interacting]
     Active Substance: WARFARIN SODIUM
     Dosage: 21 MG, WEEKLY
     Route: 065
     Dates: start: 19990127, end: 19990302
  19. FUROSEMIDE. [Concomitant]
     Active Substance: FUROSEMIDE
     Dosage: 40 MG, 1X/DAY
     Route: 065

REACTIONS (2)
  - Drug interaction [Recovered/Resolved]
  - International normalised ratio increased [Recovered/Resolved]
